FAERS Safety Report 19210642 (Version 1)
Quarter: 2021Q2

REPORT INFORMATION
  Report Type: Spontaneous
  Country: US (occurrence: US)
  Receive Date: 20210503
  Receipt Date: 20210503
  Transmission Date: 20210717
  Serious: Yes (Hospitalization)
  Sender: FDA-Public Use
  Company Number: None

PATIENT
  Age: 61 Year
  Sex: Male

DRUGS (1)
  1. PROMACTA [Suspect]
     Active Substance: ELTROMBOPAG OLAMINE
     Indication: THROMBOCYTOPENIA
     Dosage: ?          OTHER FREQUENCY:QAM;?
     Route: 048
     Dates: start: 20200728

REACTIONS (2)
  - Adrenal insufficiency [None]
  - Blood sodium decreased [None]

NARRATIVE: CASE EVENT DATE: 20210427
